FAERS Safety Report 7133335-2 (Version None)
Quarter: 2010Q4

REPORT INFORMATION
  Report Type: 
  Country: None (occurrence: None)
  Receive Date: 20101117
  Receipt Date: 20101102
  Transmission Date: 20110411
  Serious: Yes (Other)
  Sender: FDA-Public Use
  Company Number: 8053067

PATIENT
  Sex: Female
  Weight: 50 kg

DRUGS (7)
  1. KEPPRA [Suspect]
     Indication: CONVULSION
     Dosage: (2000 MG BID ORAL)
     Route: 048
     Dates: start: 20090101, end: 20091001
  2. COUMADIN [Concomitant]
  3. VALIUM [Concomitant]
  4. ATENOLOL [Concomitant]
  5. SYNTHROID [Concomitant]
  6. DEPAKOTE [Concomitant]
  7. DIAMOX [Concomitant]

REACTIONS (17)
  - ABASIA [None]
  - ABNORMAL BEHAVIOUR [None]
  - AGGRESSION [None]
  - AMNESIA [None]
  - APPETITE DISORDER [None]
  - ASTHENIA [None]
  - ATAXIA [None]
  - CONFUSIONAL STATE [None]
  - COORDINATION ABNORMAL [None]
  - DIPLOPIA [None]
  - DRUG LEVEL DECREASED [None]
  - DYSARTHRIA [None]
  - HEADACHE [None]
  - LOSS OF CONSCIOUSNESS [None]
  - STRESS [None]
  - TREMOR [None]
  - WEIGHT DECREASED [None]
